FAERS Safety Report 4954776-5 (Version None)
Quarter: 2006Q1

REPORT INFORMATION
  Report Type: 
  Country: None (occurrence: None)
  Receive Date: 20060322
  Receipt Date: 20060303
  Transmission Date: 20060701
  Serious: Yes (Other)
  Sender: FDA-Public Use
  Company Number: GB200602002626

PATIENT
  Age: 76 Year
  Sex: Male
  Weight: 70 kg

DRUGS (17)
  1. XIGRIS [Suspect]
     Indication: SEPSIS
     Dosage: 1.92 MG, EVERY HOUR, INTRAVENOUS
     Route: 042
     Dates: start: 20060212, end: 20060216
  2. ENOXAPARIN SODIUM [Concomitant]
  3. METOCLOPRAMIDE [Concomitant]
  4. CEFTRIAXONE [Concomitant]
  5. ACETAMINOPHEN [Concomitant]
  6. SALBUTAMOL (SALBUTAMOL) [Concomitant]
  7. ATROVENT [Concomitant]
  8. METRONIDAZOLE [Concomitant]
  9. CEFUROXIME [Concomitant]
  10. OMEPRAZOLE [Concomitant]
  11. HYDROCORTISONE [Concomitant]
  12. GENTAMICIN [Concomitant]
  13. ACTRAPID HUMAN (INSULIN HUMAN) INFUSION [Concomitant]
  14. PROPOFOL [Concomitant]
  15. ALFENTANIL [Concomitant]
  16. NORADRENALINE (NOREPINEPHRINE) [Concomitant]
  17. DOBUTAMINE (DOBUTAMINE) [Concomitant]

REACTIONS (1)
  - THROMBOCYTOPENIA [None]
